FAERS Safety Report 9736073 (Version 1)
Quarter: 2013Q4

REPORT INFORMATION
  Report Type: Spontaneous
  Country: US (occurrence: US)
  Receive Date: 20131206
  Receipt Date: 20131206
  Transmission Date: 20140711
  Serious: Yes (Death)
  Sender: FDA-Public Use
  Company Number: US-GLAXOSMITHKLINE-A1052401A

PATIENT
  Age: 62 Year
  Sex: Male

DRUGS (20)
  1. VOTRIENT [Suspect]
     Indication: RENAL CANCER
     Dosage: 600MG PER DAY
     Route: 048
     Dates: start: 20130919
  2. TYLENOL [Concomitant]
  3. DRONABINOL [Concomitant]
  4. MULTIVITAMIN [Concomitant]
  5. SENNA [Concomitant]
  6. COLACE [Concomitant]
  7. MIRALAX [Concomitant]
  8. TAMSULOSIN [Concomitant]
  9. FLOMAX [Concomitant]
  10. SIMVASTATIN [Concomitant]
  11. PANTOPRAZOLE [Concomitant]
  12. OXYCONTIN [Concomitant]
  13. ZOFRAN [Concomitant]
  14. MIRTAZAPINE [Concomitant]
  15. METOPROLOL [Concomitant]
  16. METHYLPHENIDATE [Concomitant]
  17. METFORMIN [Concomitant]
  18. HYDROMORPHONE [Concomitant]
  19. GLIPIZIDE [Concomitant]
  20. ALLOPURINOL [Concomitant]

REACTIONS (1)
  - Death [Fatal]
